FAERS Safety Report 8185761-0 (Version None)
Quarter: 2012Q1

REPORT INFORMATION
  Report Type: 
  Country: None (occurrence: None)
  Receive Date: 20120305
  Receipt Date: 20120222
  Transmission Date: 20120608
  Serious: Yes (Hospitalization)
  Sender: FDA-Public Use
  Company Number: AU-FRI-1000028425

PATIENT
  Sex: Male
  Weight: 2 kg

DRUGS (1)
  1. CITALOPRAM HYDROBROMIDE [Suspect]
     Route: 064
     Dates: start: 20110515

REACTIONS (2)
  - FOETAL EXPOSURE DURING PREGNANCY [None]
  - PULMONARY HYPERTENSION [None]
